FAERS Safety Report 6936212-2 (Version None)
Quarter: 2010Q3

REPORT INFORMATION
  Report Type: 
  Country: None (occurrence: None)
  Receive Date: 20100823
  Receipt Date: 20100816
  Transmission Date: 20110219
  Serious: Yes (Hospitalization)
  Sender: FDA-Public Use
  Company Number: FR-PFIZER INC-2010067736

PATIENT
  Age: 41 Year
  Sex: Male

DRUGS (6)
  1. ALDACTONE [Suspect]
     Dosage: 50 MG, 1X/DAY
     Route: 048
     Dates: start: 20080227
  2. ATARAX [Suspect]
     Indication: ANXIETY
     Dosage: 100 MG, 1X/DAY
     Route: 048
  3. METHADONE [Suspect]
     Indication: DRUG DEPENDENCE
     Dosage: 1 DF, 1X/DAY
     Route: 048
  4. IMOVANE [Suspect]
     Indication: INSOMNIA
     Dosage: 7.5 MG, 1X/DAY
     Route: 048
  5. PREVISCAN [Suspect]
     Dosage: 20 MG, 1X/DAY
     Route: 048
     Dates: start: 20080507
  6. LASIX [Suspect]
     Dosage: UNK
     Route: 048
     Dates: start: 20080227

REACTIONS (2)
  - INTERNATIONAL NORMALISED RATIO INCREASED [None]
  - PROTHROMBIN LEVEL DECREASED [None]
